FAERS Safety Report 21609244 (Version 1)
Quarter: 2022Q4

REPORT INFORMATION
  Report Type: Spontaneous
  Country: US (occurrence: None)
  Receive Date: 20221116
  Receipt Date: 20221116
  Transmission Date: 20230113
  Serious: Yes (Other)
  Sender: FDA-Public Use
  Company Number: None

PATIENT
  Sex: Female

DRUGS (5)
  1. DALFAMPRIDINE [Suspect]
     Active Substance: DALFAMPRIDINE
     Indication: Multiple sclerosis
     Route: 048
     Dates: start: 20181002
  2. ALEVE [Concomitant]
     Active Substance: NAPROXEN SODIUM
  3. AUBAGIO [Concomitant]
     Active Substance: TERIFLUNOMIDE
  4. PREDNISONE [Concomitant]
     Active Substance: PREDNISONE
  5. VIT D3/VIT C [Concomitant]

REACTIONS (1)
  - Therapy interrupted [None]
